FAERS Safety Report 25072217 (Version 1)
Quarter: 2025Q1

REPORT INFORMATION
  Report Type: Report from Study
  Country: US (occurrence: US)
  Receive Date: 20250313
  Receipt Date: 20250313
  Transmission Date: 20250408
  Serious: No
  Sender: AMNEAL
  Company Number: US-AMNEAL PHARMACEUTICALS-2025-AMRX-00306

PATIENT
  Sex: Female

DRUGS (1)
  1. RELEUKO [Suspect]
     Active Substance: FILGRASTIM-AYOW
     Indication: Neutropenia
     Route: 058

REACTIONS (2)
  - Laboratory test abnormal [Unknown]
  - Product dose omission issue [Unknown]
